FAERS Safety Report 7524547-4 (Version None)
Quarter: 2011Q2

REPORT INFORMATION
  Report Type: 
  Country: None (occurrence: None)
  Receive Date: 20110606
  Receipt Date: 20110526
  Transmission Date: 20111010
  Serious: Yes (Hospitalization, Other)
  Sender: FDA-Public Use
  Company Number: US-BAYER-201028638NA

PATIENT
  Age: 30 Year
  Sex: Female
  Weight: 94.785 kg

DRUGS (25)
  1. YASMIN [Suspect]
     Indication: PREMENSTRUAL SYNDROME
     Dosage: UNK
     Dates: start: 20070501, end: 20071101
  2. CEPHALEXIN [Concomitant]
     Dosage: 500 MG, UNK
     Dates: start: 20010904
  3. LEXAPRO [Concomitant]
     Dosage: 10 MG, QD
     Route: 048
     Dates: start: 20070313
  4. LEXAPRO [Concomitant]
     Dosage: 10 MG, UNK
     Dates: start: 20070614
  5. CEPHALEXIN [Concomitant]
     Dosage: 500 MG, UNK
     Dates: start: 20060123
  6. CEPHALEXIN [Concomitant]
     Dosage: 500 MG, UNK
     Dates: start: 20061104
  7. CLINDAMYCIN [Concomitant]
     Dosage: 2 DF, QID
     Dates: start: 20061211
  8. CLINDAMYCIN [Concomitant]
     Dosage: 1 DF, QID
     Route: 048
  9. YAZ [Suspect]
     Indication: PREMENSTRUAL SYNDROME
     Dosage: UNK
     Dates: start: 20071101, end: 20090601
  10. AZITHROMYCIN [Concomitant]
     Dosage: 250 MG, UNK
     Dates: start: 20061114
  11. YAZ [Suspect]
     Indication: CONTRACEPTION
     Dosage: UNK UNK, UNK
     Route: 048
     Dates: start: 20070101, end: 20070501
  12. AZITHROMYCIN [Concomitant]
     Dosage: 250 MG, UNK
     Dates: start: 20070716
  13. ALPRAZOLAM [Concomitant]
     Dosage: 0.5 MG, UNK
     Dates: start: 20070629
  14. CELEBREX [Concomitant]
     Dosage: 200 MG, UNK
     Dates: start: 20050916
  15. OXYCODONE HCL AND ACETAMINOPHEN [Concomitant]
     Dosage: UNK
     Dates: start: 20060123
  16. PROMETHAZINE [Concomitant]
     Dosage: UNK
     Dates: start: 20010514, end: 20060123
  17. ALPRAZOLAM [Concomitant]
     Indication: ANXIETY
     Dosage: 0.5 MG, PRN
     Dates: start: 20020917
  18. HYDROCODONE BITARTRATE [Concomitant]
     Indication: PAIN
     Dosage: UNK
     Dates: start: 20010320, end: 20081108
  19. YASMIN [Suspect]
     Indication: CONTRACEPTION
     Dosage: UNK
     Dates: start: 20020901, end: 20070101
  20. FLEXERIL [Concomitant]
     Indication: MUSCLE RELAXANT THERAPY
     Dosage: UNK
     Dates: start: 20070507
  21. AZITHROMYCIN [Concomitant]
     Dosage: 250 MG, UNK
     Dates: start: 20061024
  22. AZITHROMYCIN [Concomitant]
     Dosage: 250 MG, UNK
     Dates: start: 20080903
  23. PROPOXYPHENE HYDROCHLORIDE [Concomitant]
     Dosage: UNK
     Dates: start: 20020726, end: 20081211
  24. EFFEXOR XR [Concomitant]
     Dosage: UNK
     Dates: start: 20020529, end: 20061024
  25. CLINDAMYCIN [Concomitant]
     Dosage: 150 MG, UNK
     Dates: start: 20080414

REACTIONS (4)
  - CHOLECYSTITIS CHRONIC [None]
  - GALLBLADDER DISORDER [None]
  - NEPHROLITHIASIS [None]
  - PANCREATITIS [None]
